FAERS Safety Report 4444037-5 (Version None)
Quarter: 2004Q3

REPORT INFORMATION
  Report Type: 
  Country: None (occurrence: None)
  Receive Date: 20040729
  Receipt Date: 20031120
  Transmission Date: 20050211
  Serious: Yes (Hospitalization)
  Sender: FDA-Public Use
  Company Number: US-JNJFOC-20031104473

PATIENT
  Age: 37 Year
  Sex: Male

DRUGS (5)
  1. RISPERDAL [Suspect]
     Indication: SCHIZOPHRENIA
     Dosage: 2 MG , IN 1 DAY, ORAL
     Route: 048
     Dates: start: 20030701
  2. GLYBURRIDE (GLIBENCLAMIDE) [Concomitant]
  3. METFORMIN HCL [Concomitant]
  4. LISINOPRIL (LISONIPRIL) [Concomitant]
  5. SIMVASTATIN [Concomitant]

REACTIONS (1)
  - DIABETES MELLITUS NON-INSULIN-DEPENDENT [None]
